FAERS Safety Report 16034449 (Version 2)
Quarter: 2021Q4

REPORT INFORMATION
  Report Type: Spontaneous
  Country: US (occurrence: US)
  Receive Date: 20190305
  Receipt Date: 20211014
  Transmission Date: 20220303
  Serious: No
  Sender: FDA-Public Use
  Company Number: US-PFIZER INC-2019090650

PATIENT
  Age: 60 Year
  Sex: Male

DRUGS (2)
  1. SOMAVERT [Suspect]
     Active Substance: PEGVISOMANT
     Dosage: 15 MG, WEEKLY
  2. SOMAVERT [Suspect]
     Active Substance: PEGVISOMANT
     Dosage: 15 MG
     Dates: start: 20210909

REACTIONS (4)
  - Weight increased [Unknown]
  - Off label use [Unknown]
  - Diarrhoea [Unknown]
  - Muscle twitching [Recovered/Resolved]
